FAERS Safety Report 9357546 (Version 1)
Quarter: 2013Q2

REPORT INFORMATION
  Report Type: Spontaneous
  Country: US (occurrence: US)
  Receive Date: 20130620
  Receipt Date: 20130620
  Transmission Date: 20140414
  Serious: Yes (Other)
  Sender: FDA-Public Use
  Company Number: US-BAYER-2013-073485

PATIENT
  Sex: Male

DRUGS (2)
  1. NEXAVAR [Suspect]
     Dosage: UNK
     Dates: start: 2011
  2. CYMBALTA [Concomitant]
     Indication: NERVE INJURY
     Dosage: UNK
     Dates: start: 2011

REACTIONS (5)
  - Gait disturbance [None]
  - Nerve injury [None]
  - Skin warm [None]
  - Dyskinesia [None]
  - Hypoaesthesia [None]
